FAERS Safety Report 5080390-X (Version None)
Quarter: 2006Q3

REPORT INFORMATION
  Report Type: 
  Country: None (occurrence: None)
  Receive Date: 20060815
  Receipt Date: 20060811
  Transmission Date: 20061208
  Serious: Yes (Life-Threatening, Hospitalization)
  Sender: FDA-Public Use
  Company Number: PHFR2006GB02488

PATIENT
  Age: 87 Year
  Sex: Female

DRUGS (6)
  1. DICLOFENAC [Suspect]
     Indication: BACK PAIN
     Dosage: 50 MG/DAY
     Route: 048
     Dates: start: 20060628, end: 20060716
  2. AMLODIPINE [Concomitant]
     Indication: HYPERTENSION
     Dosage: 5 MG/DAY
     Route: 048
  3. DORZOLAMIDE [Concomitant]
     Indication: GLAUCOMA
     Dosage: 1 DF, UNK
     Route: 065
  4. FUROSEMIDE [Concomitant]
     Indication: CARDIAC FAILURE
     Dosage: 40MG / DAY
     Route: 048
  5. LEVOTHYROXINE SODIUM [Concomitant]
     Indication: HYPERTHYROIDISM
     Dosage: 50 MCG/DAY
     Route: 048
  6. SENNA [Concomitant]
     Indication: CONSTIPATION
     Dosage: 7.5 MG/DAY
     Route: 048

REACTIONS (4)
  - CARDIAC ARREST [None]
  - GASTRIC ULCER PERFORATION [None]
  - GASTRIC ULCER SURGERY [None]
  - HYPOVOLAEMIA [None]
